FAERS Safety Report 21701240 (Version 1)
Quarter: 2022Q4

REPORT INFORMATION
  Report Type: Report from Study
  Country: US (occurrence: US)
  Receive Date: 20221208
  Receipt Date: 20221208
  Transmission Date: 20230113
  Serious: Yes (Other)
  Sender: FDA-Public Use
  Company Number: US-ABBVIE-4227336

PATIENT
  Age: 75 Year
  Sex: Female

DRUGS (2)
  1. IMBRUVICA [Suspect]
     Active Substance: IBRUTINIB
     Indication: Chronic lymphocytic leukaemia
     Route: 048
     Dates: start: 201804
  2. IMBRUVICA [Suspect]
     Active Substance: IBRUTINIB
     Indication: Chronic lymphocytic leukaemia
     Route: 048

REACTIONS (10)
  - Mitral valve prolapse [Unknown]
  - Arthropod bite [Unknown]
  - Fatigue [Unknown]
  - Pruritus allergic [Unknown]
  - Blister [Unknown]
  - Bed bug infestation [Unknown]
  - Skin cancer [Unknown]
  - Platelet count abnormal [Unknown]
  - COVID-19 [Unknown]
  - Memory impairment [Unknown]

NARRATIVE: CASE EVENT DATE: 20221101
